FAERS Safety Report 6253445-1 (Version None)
Quarter: 2009Q2

REPORT INFORMATION
  Report Type: 
  Country: None (occurrence: None)
  Receive Date: 20090626
  Receipt Date: 20090308
  Transmission Date: 20091009
  Serious: Yes (Other)
  Sender: FDA-Public Use
  Company Number: 621715

PATIENT
  Sex: Male

DRUGS (1)
  1. XELODA [Suspect]
     Indication: RECTAL CANCER

REACTIONS (4)
  - DEHYDRATION [None]
  - DIARRHOEA [None]
  - FOOD INTERACTION [None]
  - LOSS OF CONSCIOUSNESS [None]
